FAERS Safety Report 23051856 (Version 1)
Quarter: 2023Q4

REPORT INFORMATION
  Report Type: Spontaneous
  Country: US (occurrence: US)
  Receive Date: 20231010
  Receipt Date: 20231010
  Transmission Date: 20240109
  Serious: No
  Sender: FDA-Public Use
  Company Number: US-Sprout Pharmaceuticals, Inc.-2023SP000140

PATIENT
  Age: 55 Year
  Sex: Female

DRUGS (3)
  1. ADDYI [Suspect]
     Active Substance: FLIBANSERIN
     Indication: Product used for unknown indication
     Route: 048
     Dates: start: 20230509, end: 20230510
  2. PROGESTERONE [Concomitant]
     Active Substance: PROGESTERONE
     Indication: Product used for unknown indication
     Route: 065
  3. TESTOSTERONE [Concomitant]
     Active Substance: TESTOSTERONE
     Indication: Product used for unknown indication
     Route: 065

REACTIONS (4)
  - Nasal congestion [Unknown]
  - Dizziness [Recovered/Resolved]
  - Insomnia [Unknown]
  - Urticaria [Recovered/Resolved]

NARRATIVE: CASE EVENT DATE: 20230509
